FAERS Safety Report 5776922-6 (Version None)
Quarter: 2008Q2

REPORT INFORMATION
  Report Type: 
  Country: None (occurrence: None)
  Receive Date: 20080618
  Receipt Date: 20080613
  Transmission Date: 20081010
  Serious: Yes (Hospitalization)
  Sender: FDA-Public Use
  Company Number: B0518394A

PATIENT
  Age: 57 Year
  Sex: Male
  Weight: 80 kg

DRUGS (2)
  1. REQUIP [Suspect]
     Indication: PARKINSON'S DISEASE
     Dosage: 18MG PER DAY
     Route: 048
     Dates: start: 20080320, end: 20080417
  2. MADOPAR [Concomitant]
     Indication: PARKINSON'S DISEASE
     Dosage: 125MG PER DAY
     Route: 048
     Dates: start: 20010101

REACTIONS (3)
  - DEPENDENCE [None]
  - DISEASE PROGRESSION [None]
  - DISTURBANCE IN SEXUAL AROUSAL [None]
